FAERS Safety Report 17401470 (Version 1)
Quarter: 2020Q1

REPORT INFORMATION
  Report Type: Spontaneous
  Country: US (occurrence: US)
  Receive Date: 20200126
  Receipt Date: 20200126
  Transmission Date: 20200409
  Serious: Yes (Hospitalization)
  Sender: FDA-Public Use
  Company Number: None

PATIENT
  Age: 55 Year
  Sex: Male

DRUGS (1)
  1. DAPTOMYCIN (DAPTOMYCIN 500MG/VIL INJ) [Suspect]
     Active Substance: DAPTOMYCIN
     Indication: OSTEOMYELITIS
     Route: 042
     Dates: start: 20191129, end: 20191206

REACTIONS (1)
  - Hypersensitivity pneumonitis [None]

NARRATIVE: CASE EVENT DATE: 20191206
